FAERS Safety Report 12809230 (Version 3)
Quarter: 2016Q4

REPORT INFORMATION
  Report Type: Spontaneous
  Country: AU (occurrence: AU)
  Receive Date: 20161004
  Receipt Date: 20161020
  Transmission Date: 20170207
  Serious: Yes (Life-Threatening, Hospitalization, Other)
  Sender: FDA-Public Use
  Company Number: AU-ABBVIE-16P-008-1744549-00

PATIENT
  Age: 29 Year
  Sex: Female

DRUGS (1)
  1. VALPROATE SODIUM. [Suspect]
     Active Substance: VALPROATE SODIUM
     Indication: EPILEPSY
     Route: 065
     Dates: end: 201304

REACTIONS (19)
  - Muscular weakness [Unknown]
  - Lethargy [Unknown]
  - Underweight [Unknown]
  - Hepatomegaly [Unknown]
  - Contusion [Unknown]
  - Gait disturbance [Unknown]
  - Malnutrition [Unknown]
  - Pallor [Unknown]
  - Dysstasia [Unknown]
  - Carnitine palmitoyltransferase deficiency [Unknown]
  - Condition aggravated [Unknown]
  - Conjunctival pallor [Unknown]
  - Myoglobinuria [Unknown]
  - Rhabdomyolysis [Recovered/Resolved]
  - Myalgia [Unknown]
  - Fatigue [Unknown]
  - Depression [Unknown]
  - Splenomegaly [Unknown]
  - Muscle atrophy [Unknown]

NARRATIVE: CASE EVENT DATE: 201303
